FAERS Safety Report 7133911-7 (Version None)
Quarter: 2010Q4

REPORT INFORMATION
  Report Type: 
  Country: None (occurrence: None)
  Receive Date: 20101203
  Receipt Date: 20101111
  Transmission Date: 20110411
  Serious: Yes (Hospitalization)
  Sender: FDA-Public Use
  Company Number: US-BAYER-201025745NA

PATIENT

DRUGS (2)
  1. YAZ [Suspect]
     Route: 048
     Dates: start: 20070101, end: 20070501
  2. YASMIN [Suspect]
     Route: 048
     Dates: start: 20070101, end: 20070501

REACTIONS (2)
  - CHOLECYSTECTOMY [None]
  - INJURY [None]
